FAERS Safety Report 5721476-3 (Version None)
Quarter: 2008Q2

REPORT INFORMATION
  Report Type: 
  Country: None (occurrence: None)
  Receive Date: 20080428
  Receipt Date: 20080428
  Transmission Date: 20081010
  Serious: Yes (Other)
  Sender: FDA-Public Use
  Company Number: None

PATIENT
  Age: 53 Year
  Sex: Male

DRUGS (12)
  1. NOVOLIN N [Suspect]
  2. NOVOLIN R [Suspect]
  3. ZETIA [Concomitant]
  4. VESICARE [Concomitant]
  5. UROXATRAL [Concomitant]
  6. ATENOLOL [Concomitant]
  7. OMEPRAZOLE [Concomitant]
  8. SETRALINE [Concomitant]
  9. ASPIRIN [Concomitant]
  10. VICADIN [Concomitant]
  11. VITAMINS [Concomitant]
  12. HERBAL MEDICINE [Concomitant]

REACTIONS (2)
  - DIABETES MELLITUS INADEQUATE CONTROL [None]
  - PHARMACEUTICAL PRODUCT COMPLAINT [None]
